FAERS Safety Report 19993688 (Version 2)
Quarter: 2023Q2

REPORT INFORMATION
  Report Type: Spontaneous
  Country: SE (occurrence: SE)
  Receive Date: 20211025
  Receipt Date: 20230403
  Transmission Date: 20230721
  Serious: Yes (Hospitalization)
  Sender: FDA-Public Use
  Company Number: None

PATIENT
  Age: 24 Year
  Sex: Male

DRUGS (6)
  1. VIMPAT [Suspect]
     Active Substance: LACOSAMIDE
     Indication: Epilepsy
     Dosage: 2,5X2
     Route: 048
     Dates: start: 20210920, end: 20211004
  2. VIMPAT [Suspect]
     Active Substance: LACOSAMIDE
     Dosage: 10 MG/ML
  3. LAMOTRIGINE [Concomitant]
     Active Substance: LAMOTRIGINE
     Indication: Product used for unknown indication
     Dosage: 200 MILLIGRAM
     Route: 048
  4. LAMOTRIGINE [Concomitant]
     Active Substance: LAMOTRIGINE
     Dosage: 100 MILLIGRAM
  5. Trileptal Oral susp Paranova [Concomitant]
     Indication: Product used for unknown indication
     Dosage: 10 MILLILITER
     Route: 048
  6. Trileptal Oral susp Paranova [Concomitant]
     Dosage: 60 MG/ML
     Route: 048

REACTIONS (3)
  - Eosinophilic pneumonia [Not Recovered/Not Resolved]
  - Pneumonitis [Recovered/Resolved]
  - Alveolitis [Not Recovered/Not Resolved]

NARRATIVE: CASE EVENT DATE: 20210920
